FAERS Safety Report 5764760-X (Version None)
Quarter: 2008Q2

REPORT INFORMATION
  Report Type: 
  Country: None (occurrence: None)
  Receive Date: 20080611
  Receipt Date: 20080530
  Transmission Date: 20081010
  Serious: Yes (Hospitalization, Other)
  Sender: FDA-Public Use
  Company Number: NO-MERCK-0806NOR00002

PATIENT
  Sex: Male

DRUGS (5)
  1. ZOCOR [Suspect]
     Route: 048
     Dates: start: 20070101
  2. FLUVASTATIN SODIUM [Suspect]
     Route: 048
  3. FLUVASTATIN SODIUM [Suspect]
     Route: 048
     Dates: start: 20030401, end: 20070101
  4. ALLOPURINOL [Concomitant]
     Route: 065
  5. ZETIA [Concomitant]
     Route: 048
     Dates: start: 20070101

REACTIONS (6)
  - BRONCHIAL DISORDER [None]
  - COUGH [None]
  - HYPOXIA [None]
  - LUNG DISORDER [None]
  - LUNG INFECTION [None]
  - MALAISE [None]
